FAERS Safety Report 22746648 (Version 2)
Quarter: 2023Q4

REPORT INFORMATION
  Report Type: Report from Study
  Country: JO (occurrence: JO)
  Receive Date: 20230725
  Receipt Date: 20231128
  Transmission Date: 20240109
  Serious: Yes (Life-Threatening, Other)
  Sender: FDA-Public Use
  Company Number: JO-PFIZER INC-PV202300126827

PATIENT
  Age: 11 Year
  Sex: Female

DRUGS (1)
  1. DOXORUBICIN HYDROCHLORIDE [Suspect]
     Active Substance: DOXORUBICIN HYDROCHLORIDE
     Indication: Osteosarcoma
     Dosage: 375 MG/M2

REACTIONS (2)
  - Cardiotoxicity [Recovered/Resolved]
  - Cardiac failure [Recovered/Resolved]
